FAERS Safety Report 7388469-4 (Version None)
Quarter: 2011Q2

REPORT INFORMATION
  Report Type: 
  Country: None (occurrence: None)
  Receive Date: 20110401
  Receipt Date: 20110326
  Transmission Date: 20111010
  Serious: Yes (Death, Other)
  Sender: FDA-Public Use
  Company Number: PHHY2011MX24915

PATIENT
  Sex: Female

DRUGS (3)
  1. DIOVAN [Suspect]
     Indication: HYPERTENSION
     Dosage: 80 MG, BID
     Route: 048
     Dates: start: 20110124
  2. SOMAZINA [Concomitant]
     Dosage: 2 TABLETS DAILY
  3. BI-EUGLUCON [Concomitant]
     Dosage: 1 TABLET DAILY

REACTIONS (3)
  - RESPIRATORY FAILURE [None]
  - HYPOGLYCAEMIA [None]
  - BLOOD GLUCOSE DECREASED [None]
